FAERS Safety Report 20641619 (Version 1)
Quarter: 2022Q1

REPORT INFORMATION
  Report Type: Other
  Country: US (occurrence: None)
  Receive Date: 20220328
  Receipt Date: 20220328
  Transmission Date: 20220423
  Serious: Yes (Death)
  Sender: FDA-Public Use
  Company Number: US-ROCHE-3057080

PATIENT
  Sex: Male

DRUGS (2)
  1. XELODA [Suspect]
     Active Substance: CAPECITABINE
     Indication: Neoplasm malignant
     Dosage: TAKE 3 TABLETS BY MOUTH TWICE A DAY ON DAYS 1-21 OF A 28 DAY CYCLE. TAKE WITH FOOD + 8OZ OF WATER.
     Route: 048
  2. XELODA [Suspect]
     Active Substance: CAPECITABINE
     Dosage: TAKE 3 TABLET(S) BY MOUTH TWICE A DAY ON DAYS 1-21 OF A 28 DAY CYCLE. TAKE WITH FOOD?+ 8OZ OF WATER.
     Route: 048

REACTIONS (2)
  - Death [Fatal]
  - Drug ineffective [Unknown]
